FAERS Safety Report 5022554-7 (Version None)
Quarter: 2006Q2

REPORT INFORMATION
  Report Type: 
  Country: None (occurrence: None)
  Receive Date: 20060605
  Receipt Date: 20060516
  Transmission Date: 20061013
  Serious: Yes (Hospitalization)
  Sender: FDA-Public Use
  Company Number: ES200605003749

PATIENT
  Age: 42 Year
  Sex: Female

DRUGS (3)
  1. FORTEO [Suspect]
     Indication: OSTEOPOROSIS
     Dosage: 20 UG, DAILY (1/D) SUBCUTANEOUS
     Route: 058
     Dates: start: 20060501
  2. FORTEO [Concomitant]
  3. CALCIUM GLUCONATE [Concomitant]

REACTIONS (3)
  - LOCALISED INFECTION [None]
  - PAIN [None]
  - RHEUMATOID ARTHRITIS [None]
